FAERS Safety Report 18436338 (Version 2)
Quarter: 2020Q4

REPORT INFORMATION
  Report Type: Spontaneous
  Country: DE (occurrence: DE)
  Receive Date: 20201028
  Receipt Date: 20201113
  Transmission Date: 20210114
  Serious: Yes (Other)
  Sender: FDA-Public Use
  Company Number: NVSC2020DE279155

PATIENT
  Age: 8 Decade
  Sex: Male

DRUGS (3)
  1. UNACID PD [Concomitant]
     Active Substance: SULTAMICILLIN TOSYLATE
     Indication: BACTERIAL TEST
     Dosage: UNK
     Route: 048
     Dates: start: 20180814, end: 20180824
  2. CIPROFLOXACIN. [Suspect]
     Active Substance: CIPROFLOXACIN
     Indication: BACTERIAL TEST
     Dosage: 1000 MG, QD
     Route: 048
     Dates: start: 20180423
  3. CIPROFLOXACIN. [Suspect]
     Active Substance: CIPROFLOXACIN
     Dosage: 1000 MG, QD
     Route: 048
     Dates: start: 20181002

REACTIONS (3)
  - Geotrichum infection [Recovered/Resolved]
  - Fungal infection [Recovered/Resolved]
  - Gut fermentation syndrome [Recovered/Resolved]
